FAERS Safety Report 6981314-8 (Version None)
Quarter: 2010Q3

REPORT INFORMATION
  Report Type: 
  Country: None (occurrence: None)
  Receive Date: 20100909
  Receipt Date: 20100830
  Transmission Date: 20110219
  Serious: Yes (Hospitalization)
  Sender: FDA-Public Use
  Company Number: 018019

PATIENT
  Sex: Male
  Weight: 88.4 kg

DRUGS (1)
  1. KEPPRA [Suspect]
     Indication: CONVULSION
     Dosage: (750 MG BID ORAL)
     Route: 048
     Dates: start: 20090701

REACTIONS (6)
  - ARTERIAL OCCLUSIVE DISEASE [None]
  - CONDITION AGGRAVATED [None]
  - CONVULSION [None]
  - DEEP VEIN THROMBOSIS [None]
  - GAIT DISTURBANCE [None]
  - JOINT INJURY [None]
